FAERS Safety Report 6625001-4 (Version None)
Quarter: 2010Q1

REPORT INFORMATION
  Report Type: 
  Country: None (occurrence: None)
  Receive Date: 20100310
  Receipt Date: 20090922
  Transmission Date: 20100710
  Serious: No
  Sender: FDA-Public Use
  Company Number: US-BIOGENIDEC-2009BI030346

PATIENT
  Age: 34 Year
  Sex: Female

DRUGS (2)
  1. AVONEX [Suspect]
     Indication: MULTIPLE SCLEROSIS
     Route: 030
     Dates: start: 20090920
  2. TYLENOL-500 [Concomitant]
     Indication: PREMEDICATION
     Route: 048
     Dates: start: 20090920

REACTIONS (7)
  - FATIGUE [None]
  - FEELING ABNORMAL [None]
  - INFLUENZA LIKE ILLNESS [None]
  - INSOMNIA [None]
  - MIGRAINE [None]
  - NAUSEA [None]
  - TREMOR [None]
